FAERS Safety Report 20195265 (Version 1)
Quarter: 2021Q4

REPORT INFORMATION
  Report Type: Spontaneous
  Country: US (occurrence: US)
  Receive Date: 20211216
  Receipt Date: 20211216
  Transmission Date: 20220303
  Serious: No
  Sender: FDA-Public Use
  Company Number: US-REGENERON PHARMACEUTICALS, INC.-2021-50798

PATIENT

DRUGS (3)
  1. EYLEA [Suspect]
     Active Substance: AFLIBERCEPT
     Indication: Neovascular age-related macular degeneration
     Dosage: 2 MG, EVERY 6-7 WEEKS IN THE RIGHT EYE
     Route: 031
  2. EYLEA [Suspect]
     Active Substance: AFLIBERCEPT
     Indication: Choroidal neovascularisation
     Dosage: 2 MG, EVERY 6-7 WEEKS IN THE RIGHT EYE
     Route: 031
     Dates: start: 202102, end: 202102
  3. EYLEA [Suspect]
     Active Substance: AFLIBERCEPT
     Dosage: 2 MG, EVERY 6-7 WEEKS IN THE RIGHT EYE
     Route: 031
     Dates: start: 20210401

REACTIONS (1)
  - Chalazion [Unknown]
